FAERS Safety Report 19487522 (Version 3)
Quarter: 2021Q3

REPORT INFORMATION
  Report Type: Spontaneous
  Country: US (occurrence: US)
  Receive Date: 20210702
  Receipt Date: 20210826
  Transmission Date: 20211014
  Serious: Yes (Life-Threatening)
  Sender: FDA-Public Use
  Company Number: US-PFIZER INC-2021757773

PATIENT
  Age: 31 Year
  Sex: Female
  Weight: 96.16 kg

DRUGS (2)
  1. DEPO?PROVERA [Suspect]
     Active Substance: MEDROXYPROGESTERONE ACETATE
     Indication: CONTRACEPTION
     Dosage: 150 MG (INJECTED IM LEFT VENTRAL GLUTEAL)
     Route: 030
     Dates: start: 20140708
  2. DEPO?PROVERA [Suspect]
     Active Substance: MEDROXYPROGESTERONE ACETATE
     Dosage: 150 MG/ML, ONCE, 90 DAYS
     Route: 030
     Dates: start: 20210610

REACTIONS (4)
  - Hypoaesthesia [Recovered/Resolved]
  - Chills [Recovered/Resolved]
  - Anaphylactic reaction [Recovered/Resolved]
  - Erythema [Recovered/Resolved]

NARRATIVE: CASE EVENT DATE: 20210610
